FAERS Safety Report 9887783 (Version 6)
Quarter: 2022Q4

REPORT INFORMATION
  Report Type: Spontaneous
  Country: US (occurrence: US)
  Receive Date: 20140211
  Receipt Date: 20221209
  Transmission Date: 20230113
  Serious: Yes (Other)
  Sender: FDA-Public Use
  Company Number: US-PFIZER INC-2014033156

PATIENT
  Age: 31 Year
  Sex: Male

DRUGS (3)
  1. BENEFIX [Suspect]
     Active Substance: COAGULATION FACTOR IX RECOMBINANT HUMAN\ISOPROPYL ALCOHOL
     Indication: Factor IX deficiency
     Dosage: 16000 IU, MONTHLY
     Dates: start: 20080222
  2. BENEFIX [Suspect]
     Active Substance: COAGULATION FACTOR IX RECOMBINANT HUMAN\ISOPROPYL ALCOHOL
     Indication: Haemorrhage
     Dosage: 2000 IU, UNK (40-50 UNITS/KG MINOR BLEEDS/80-100 UNITS/KG MAJOR)
  3. BENEFIX [Suspect]
     Active Substance: COAGULATION FACTOR IX RECOMBINANT HUMAN\ISOPROPYL ALCOHOL
     Dosage: 2000 IU, AS NEEDED (INFUSE AS NEEDED FOR BLEEDING MINOR 4000, MAJOR 8000 UNITS +/-10%.)

REACTIONS (2)
  - Post procedural haemorrhage [Unknown]
  - Tooth disorder [Unknown]
